FAERS Safety Report 11365469 (Version 2)
Quarter: 2015Q3

REPORT INFORMATION
  Report Type: Spontaneous
  Country: US (occurrence: US)
  Receive Date: 20150811
  Receipt Date: 20150903
  Transmission Date: 20151125
  Serious: Yes (Hospitalization, Other)
  Sender: FDA-Public Use
  Company Number: US-GLAXOSMITHKLINE-US2015GSK114979

PATIENT
  Age: 62 Year
  Sex: Female
  Weight: 53 kg

DRUGS (3)
  1. MEKINIST [Suspect]
     Active Substance: TRAMETINIB DIMETHYL SULFOXIDE
     Dosage: 2 MG EVERY 48 HOURS
     Route: 048
     Dates: start: 20150702, end: 20150804
  2. AFINITOR [Concomitant]
     Active Substance: EVEROLIMUS
     Dosage: 5 MG EVERY 48 HOURS
     Route: 048
     Dates: start: 20140825
  3. FEMARA [Concomitant]
     Active Substance: LETROZOLE
     Dosage: 2.5 MG, QD
     Route: 048
     Dates: start: 20140825

REACTIONS (2)
  - Dyspnoea [Unknown]
  - Intracardiac thrombus [Unknown]

NARRATIVE: CASE EVENT DATE: 20150804
